FAERS Safety Report 13305274 (Version 2)
Quarter: 2017Q2

REPORT INFORMATION
  Report Type: Report from Study
  Country: BE (occurrence: BE)
  Receive Date: 20170308
  Receipt Date: 20170425
  Transmission Date: 20170830
  Serious: No
  Sender: FDA-Public Use
  Company Number: BE-OTSUKA-2017_005004

PATIENT
  Age: 35 Year
  Sex: Male
  Weight: 75 kg

DRUGS (26)
  1. BLINDED *PLACEBO [Suspect]
     Active Substance: INVESTIGATIONAL PRODUCT
     Dosage: 15 MG(IN EVENING), QD
     Route: 048
     Dates: start: 20150526, end: 20150529
  2. BLINDED *PLACEBO [Suspect]
     Active Substance: INVESTIGATIONAL PRODUCT
     Dosage: 30 MG(IN EVENING) QD
     Route: 048
     Dates: start: 20150603, end: 20150604
  3. BLINDED TOLVAPTAN [Suspect]
     Active Substance: TOLVAPTAN
     Dosage: 30 MG(IN EVENING) QD
     Route: 048
     Dates: start: 20150603, end: 20150604
  4. BLINDED *PLACEBO [Suspect]
     Active Substance: INVESTIGATIONAL PRODUCT
     Dosage: PLACEBO (IN MORNING), QD
     Route: 048
     Dates: start: 20150514, end: 20150521
  5. BLINDED *PLACEBO [Suspect]
     Active Substance: INVESTIGATIONAL PRODUCT
     Dosage: 60 MG (IN MORNING), QD
     Route: 048
     Dates: start: 20150530, end: 20150602
  6. BLINDED TOLVAPTAN [Suspect]
     Active Substance: TOLVAPTAN
     Dosage: 60 MG (IN MORNING), QD
     Route: 048
     Dates: start: 20150530, end: 20150602
  7. BLINDED TOLVAPTAN [Suspect]
     Active Substance: TOLVAPTAN
     Dosage: 30 MG (IN EVENING), QD
     Route: 048
     Dates: start: 20150530, end: 20150602
  8. TERAZOSINE [Concomitant]
     Indication: PRODUCT USED FOR UNKNOWN INDICATION
     Dosage: 2 MG, QD
     Route: 048
     Dates: start: 20151008
  9. BLINDED *PLACEBO [Suspect]
     Active Substance: INVESTIGATIONAL PRODUCT
     Indication: CONGENITAL CYSTIC KIDNEY DISEASE
     Dosage: 90 MG (MORNING), QD
     Route: 048
     Dates: start: 20150605, end: 20160615
  10. BLINDED *PLACEBO [Suspect]
     Active Substance: INVESTIGATIONAL PRODUCT
     Dosage: 30 MG (IN MORNING), QD
     Route: 048
     Dates: start: 20150522, end: 20150525
  11. BLINDED *PLACEBO [Suspect]
     Active Substance: INVESTIGATIONAL PRODUCT
     Dosage: 15 MG  (IN EVENING), QD
     Route: 048
     Dates: start: 20150522, end: 20150525
  12. BLINDED TOLVAPTAN [Suspect]
     Active Substance: TOLVAPTAN
     Dosage: 45 MG (IN MORNING),QD
     Route: 048
     Dates: start: 20150526, end: 20150529
  13. BLINDED TOLVAPTAN [Suspect]
     Active Substance: TOLVAPTAN
     Dosage: PLACEBO (IN MORNING), QD
     Route: 048
     Dates: start: 20150514, end: 20150521
  14. BLINDED *PLACEBO [Suspect]
     Active Substance: INVESTIGATIONAL PRODUCT
     Dosage: PLACEBO (IN EVENING), QD
     Route: 048
     Dates: start: 20150514, end: 20150521
  15. COVERAM [Concomitant]
     Active Substance: AMLODIPINE\PERINDOPRIL
     Indication: PRODUCT USED FOR UNKNOWN INDICATION
     Dosage: 10/10 MG, QD
     Route: 048
     Dates: start: 20150501
  16. BLINDED *PLACEBO [Suspect]
     Active Substance: INVESTIGATIONAL PRODUCT
     Dosage: 30 MG (IN EVENING), QD
     Route: 048
     Dates: start: 20150605, end: 20160615
  17. BLINDED TOLVAPTAN [Suspect]
     Active Substance: TOLVAPTAN
     Dosage: 15 MG  (IN EVENING), QD
     Route: 048
     Dates: start: 20150522, end: 20150525
  18. BLINDED *PLACEBO [Suspect]
     Active Substance: INVESTIGATIONAL PRODUCT
     Dosage: 45 MG (IN MORNING),QD
     Route: 048
     Dates: start: 20150526, end: 20150529
  19. BLINDED *PLACEBO [Suspect]
     Active Substance: INVESTIGATIONAL PRODUCT
     Dosage: 30 MG (IN EVENING), QD
     Route: 048
     Dates: start: 20150530, end: 20150602
  20. BLINDED TOLVAPTAN [Suspect]
     Active Substance: TOLVAPTAN
     Dosage: 90 MG (MORNING), QD
     Route: 048
     Dates: start: 20150603, end: 20150604
  21. BLINDED TOLVAPTAN [Suspect]
     Active Substance: TOLVAPTAN
     Indication: CONGENITAL CYSTIC KIDNEY DISEASE
     Dosage: 90 MG (MORNING), QD
     Route: 048
     Dates: start: 20150605, end: 20160615
  22. BLINDED TOLVAPTAN [Suspect]
     Active Substance: TOLVAPTAN
     Dosage: 30 MG (IN EVENING), QD
     Route: 048
     Dates: start: 20150605, end: 20160615
  23. BLINDED TOLVAPTAN [Suspect]
     Active Substance: TOLVAPTAN
     Dosage: PLACEBO (IN EVENING), QD
     Route: 048
     Dates: start: 20150514, end: 20150521
  24. BLINDED *PLACEBO [Suspect]
     Active Substance: INVESTIGATIONAL PRODUCT
     Dosage: 90 MG (MORNING), QD
     Route: 048
     Dates: start: 20150603, end: 20150604
  25. BLINDED TOLVAPTAN [Suspect]
     Active Substance: TOLVAPTAN
     Dosage: 30 MG (IN MORNING), QD
     Route: 048
     Dates: start: 20150522, end: 20150525
  26. BLINDED TOLVAPTAN [Suspect]
     Active Substance: TOLVAPTAN
     Dosage: 15 MG(IN EVENING), QD
     Route: 048
     Dates: start: 20150526, end: 20150529

REACTIONS (1)
  - Aspartate aminotransferase increased [Recovered/Resolved]

NARRATIVE: CASE EVENT DATE: 20151022
